FAERS Safety Report 13297689 (Version 1)
Quarter: 2017Q1

REPORT INFORMATION
  Report Type: Spontaneous
  Country: US (occurrence: US)
  Receive Date: 20170304
  Receipt Date: 20170304
  Transmission Date: 20170428
  Serious: No
  Sender: FDA-Public Use
  Company Number: None

PATIENT
  Age: 3 Year
  Sex: Male
  Weight: 15.75 kg

DRUGS (1)
  1. POLYETHYLENE GLYCOL [Suspect]
     Active Substance: POLYETHYLENE GLYCOLS
     Indication: CONSTIPATION
     Route: 048

REACTIONS (5)
  - Aggression [None]
  - Personality change [None]
  - Anger [None]
  - Crying [None]
  - Abnormal behaviour [None]

NARRATIVE: CASE EVENT DATE: 20170214
